FAERS Safety Report 5874573-6 (Version None)
Quarter: 2008Q3

REPORT INFORMATION
  Report Type: 
  Country: None (occurrence: None)
  Receive Date: 20080909
  Receipt Date: 20080908
  Transmission Date: 20090109
  Serious: Yes (Hospitalization)
  Sender: FDA-Public Use
  Company Number: PHHO2006DE20055

PATIENT
  Sex: Male
  Weight: 84 kg

DRUGS (3)
  1. TASIGNA [Suspect]
     Indication: SYSTEMIC MASTOCYTOSIS
     Route: 048
     Dates: start: 20050901
  2. REVLIMID [Concomitant]
     Indication: MYELODYSPLASTIC SYNDROME
  3. NOVALGIN [Concomitant]

REACTIONS (5)
  - BACK PAIN [None]
  - DISEASE PROGRESSION [None]
  - DRUG INEFFECTIVE [None]
  - SPINAL COMPRESSION FRACTURE [None]
  - SYNCOPE [None]
